FAERS Safety Report 6361475-4 (Version None)
Quarter: 2009Q3

REPORT INFORMATION
  Report Type: 
  Country: None (occurrence: None)
  Receive Date: 20090918
  Receipt Date: 20090908
  Transmission Date: 20100115
  Serious: Yes (Hospitalization, Other)
  Sender: FDA-Public Use
  Company Number: JP-PFIZER INC-2009267323

PATIENT
  Age: 66 Year

DRUGS (4)
  1. ZITHROMAC SR [Suspect]
     Dosage: UNK
     Route: 048
     Dates: start: 20090903, end: 20090903
  2. LEVOFLOXACIN [Concomitant]
     Route: 048
  3. MINOCYCLINE HCL [Concomitant]
  4. THEOPHYLLINE [Concomitant]
     Route: 048

REACTIONS (2)
  - HEPATIC FUNCTION ABNORMAL [None]
  - INTERSTITIAL LUNG DISEASE [None]
